FAERS Safety Report 8385585 (Version 2)
Quarter: 2013Q2

REPORT INFORMATION
  Report Type: Spontaneous
  Country: US (occurrence: None)
  Receive Date: 20111221
  Receipt Date: 20121227
  Transmission Date: 20140414
  Serious: Yes (Hospitalization)
  Sender: FDA-Public Use
  Company Number: PHEH2011US02864

PATIENT
  Age: 39 Year
  Sex: Male
  Weight: 92.6 kg

DRUGS (9)
  1. EXJADE [Suspect]
     Indication: IRON OVERLOAD
     Route: 048
  2. HYDROXYUREA (HYDROXYCARBAMIDE) [Concomitant]
  3. FOLIC ACID (FOLIC ACID) [Concomitant]
  4. LISINOPRIL (LISINOPRIL) [Concomitant]
  5. METOPROLOL (METOPROLOL) [Concomitant]
  6. MS CONTIN (MORPHINE SULFATE) [Concomitant]
  7. PROTONIX (PANTOPRAZOLE) [Concomitant]
  8. TRILEPTAL (OXCARBAZEPINE) [Concomitant]
  9. ASPIRIN (ACETYLSALICYLIC ACID) [Concomitant]

REACTIONS (3)
  - SICKLE CELL ANAEMIA WITH CRISIS [None]
  - Amnesia [None]
  - Pain [None]
